FAERS Safety Report 7460026-0 (Version None)
Quarter: 2011Q2

REPORT INFORMATION
  Report Type: 
  Country: None (occurrence: None)
  Receive Date: 20110427
  Receipt Date: 20110412
  Transmission Date: 20111010
  Serious: Yes (Death, Disabling, Other)
  Sender: FDA-Public Use
  Company Number: ALA_00725_2010

PATIENT
  Sex: Male

DRUGS (3)
  1. REGLAN [Suspect]
     Indication: ABDOMINAL DISTENSION
     Dosage: (APPROXIMATELY 40 MG DAILY ORAL)
     Route: 048
     Dates: start: 20050101, end: 20090601
  2. REGLAN [Suspect]
     Indication: GASTROOESOPHAGEAL REFLUX DISEASE
     Dosage: (APPROXIMATELY 40 MG DAILY ORAL)
     Route: 048
     Dates: start: 20050101, end: 20090601
  3. REGLAN [Suspect]
     Indication: DYSPEPSIA
     Dosage: (APPROXIMATELY 40 MG DAILY ORAL)
     Route: 048
     Dates: start: 20050101, end: 20090601

REACTIONS (12)
  - ACTIVITIES OF DAILY LIVING IMPAIRED [None]
  - PAIN [None]
  - MULTIPLE INJURIES [None]
  - EXTRAPYRAMIDAL DISORDER [None]
  - ANXIETY [None]
  - DEFORMITY [None]
  - TARDIVE DYSKINESIA [None]
  - MENTAL DISORDER [None]
  - QUALITY OF LIFE DECREASED [None]
  - NERVOUS SYSTEM DISORDER [None]
  - TOXICITY TO VARIOUS AGENTS [None]
  - ECONOMIC PROBLEM [None]
